FAERS Safety Report 9885613 (Version 4)
Quarter: 2014Q3

REPORT INFORMATION
  Report Type: Report from Study
  Country: JP (occurrence: JP)
  Receive Date: 20140210
  Receipt Date: 20140723
  Transmission Date: 20150326
  Serious: Yes (Hospitalization)
  Sender: FDA-Public Use
  Company Number: JP-EISAI INC-E2090-03106-CLI-JP

PATIENT
  Age: 73 Year
  Sex: Male

DRUGS (15)
  1. METHYLCOBAL [Concomitant]
     Indication: LUMBAR SPINAL STENOSIS
     Route: 048
  2. SENNOSIDE [Concomitant]
     Active Substance: SENNOSIDES
     Indication: CONSTIPATION
     Route: 048
  3. EC-DOPARL [Concomitant]
     Active Substance: BENSERAZIDE HYDROCHLORIDE\LEVODOPA
     Indication: DEMENTIA WITH LEWY BODIES
     Dosage: UNKNOWN
     Route: 048
  4. RINDERON VG [Concomitant]
     Active Substance: BETAMETHASONE VALERATE\GENTAMICIN SULFATE
     Indication: SEBORRHOEIC DERMATITIS
     Dosage: UNKNOWN
     Route: 048
     Dates: start: 20131018
  5. PRAVASTATIN [Concomitant]
     Active Substance: PRAVASTATIN\PRAVASTATIN SODIUM
     Indication: HYPERCHOLESTEROLAEMIA
     Route: 048
  6. ZONISAMIDE/PLACEBO [Suspect]
     Active Substance: ZONISAMIDE
     Indication: DEMENTIA WITH LEWY BODIES
     Dosage: DOUBLE-BLIND
     Route: 048
     Dates: start: 20131121, end: 20140203
  7. MAGLAX [Concomitant]
     Active Substance: MAGNESIUM OXIDE
     Indication: CONSTIPATION
     Dosage: UNKNOWN
     Route: 048
     Dates: start: 20131228
  8. LAC-B [Concomitant]
     Active Substance: BIFIDOBACTERIUM SPP.
  9. DEPAKENE [Concomitant]
     Active Substance: VALPROIC ACID
     Indication: DEMENTIA WITH LEWY BODIES
     Route: 048
  10. MOHRUS TAPE [Concomitant]
     Active Substance: KETOPROFEN
     Indication: LUMBAR SPINAL STENOSIS
     Dosage: UNKNOWN
     Route: 065
     Dates: start: 20131018
  11. BIOFERMIN [Concomitant]
     Active Substance: BACILLUS SUBTILIS\LACTOBACILLUS ACIDOPHILUS\STREPTOCOCCUS FAECAIS
  12. SYMMETREL [Concomitant]
     Active Substance: AMANTADINE HYDROCHLORIDE
     Indication: DEMENTIA WITH LEWY BODIES
     Dosage: UNKNOWN
     Route: 048
  13. LIMAPROST ALFADEX [Concomitant]
     Active Substance: LIMAPROST
     Indication: THROMBOSIS PROPHYLAXIS
     Route: 048
  14. TAMSULOSIN HYDROCHLORIDE. [Concomitant]
     Active Substance: TAMSULOSIN HYDROCHLORIDE
     Indication: BENIGN PROSTATIC HYPERPLASIA
     Route: 048
  15. REBAMIPIDE [Concomitant]
     Active Substance: REBAMIPIDE
     Indication: GASTRITIS PROPHYLAXIS
     Route: 048

REACTIONS (1)
  - Pneumonia [Recovered/Resolved]

NARRATIVE: CASE EVENT DATE: 20140204
